APPROVED DRUG PRODUCT: DUTASTERIDE AND TAMSULOSIN HYDROCHLORIDE
Active Ingredient: DUTASTERIDE; TAMSULOSIN HYDROCHLORIDE
Strength: 0.5MG;0.4MG
Dosage Form/Route: CAPSULE;ORAL
Application: A213300 | Product #001 | TE Code: AB
Applicant: AUROBINDO PHARMA LTD
Approved: Jul 18, 2024 | RLD: No | RS: No | Type: RX